FAERS Safety Report 21397102 (Version 1)
Quarter: 2022Q3

REPORT INFORMATION
  Report Type: Spontaneous
  Country: US (occurrence: None)
  Receive Date: 20220929
  Receipt Date: 20220929
  Transmission Date: 20221027
  Serious: Yes (Hospitalization)
  Sender: FDA-Public Use
  Company Number: None

PATIENT
  Age: 46 Year
  Sex: Male

DRUGS (7)
  1. BOSULIF [Suspect]
     Active Substance: BOSUTINIB MONOHYDRATE
     Indication: Philadelphia positive chronic myeloid leukaemia
     Dosage: TAKE 2 TABLETS (200 MG) BY MOUTH ONCE DAILY WITH A MEAL.
     Route: 048
     Dates: start: 20190814
  2. ALLOPURINOL [Concomitant]
     Active Substance: ALLOPURINOL
  3. BAYER CHILD CHW ASA [Concomitant]
  4. DULOXETINE HYDROCHLORIDE [Concomitant]
     Active Substance: DULOXETINE HYDROCHLORIDE
  5. POT CHLORIDE CAP ER [Concomitant]
  6. TELMISA/HCTZ TAB [Concomitant]
  7. VERAPAMIL TAB [Concomitant]

REACTIONS (2)
  - Hospitalisation [None]
  - Therapy interrupted [None]

NARRATIVE: CASE EVENT DATE: 20220812
